FAERS Safety Report 4852052-2 (Version None)
Quarter: 2005Q4

REPORT INFORMATION
  Report Type: 
  Country: None (occurrence: None)
  Receive Date: 20051213
  Receipt Date: 20051201
  Transmission Date: 20060501
  Serious: Yes (Hospitalization)
  Sender: FDA-Public Use
  Company Number: FR-ROCHE-427140

PATIENT
  Age: 40 Year
  Sex: Female

DRUGS (2)
  1. CELLCEPT [Suspect]
     Indication: LUPUS NEPHRITIS
     Route: 048
  2. CELLCEPT [Suspect]
     Route: 048

REACTIONS (6)
  - ANAPHYLACTIC SHOCK [None]
  - DYSAESTHESIA [None]
  - HAEMATOMA [None]
  - PARAPLEGIA [None]
  - SUPERINFECTION LUNG [None]
  - VIRAL INFECTION [None]
